FAERS Safety Report 18690867 (Version 3)
Quarter: 2021Q2

REPORT INFORMATION
  Report Type: Spontaneous
  Country: US (occurrence: US)
  Receive Date: 20210101
  Receipt Date: 20210401
  Transmission Date: 20210717
  Serious: No
  Sender: FDA-Public Use
  Company Number: US-ASTRAZENECA-2020SF64431

PATIENT
  Age: 61 Year
  Sex: Female
  Weight: 59.4 kg

DRUGS (1)
  1. BREZTRI [Suspect]
     Active Substance: BUDESONIDE\FORMOTEROL\GLYCOPYRRONIUM
     Indication: ASTHMA
     Dosage: 160 MCG?9MCG?4.8MCG 2 PUFFS TWICE A DAY
     Route: 055
     Dates: start: 202010

REACTIONS (4)
  - Cough [Unknown]
  - Wrong technique in product usage process [Unknown]
  - Intentional device misuse [Unknown]
  - Device malfunction [Unknown]
